FAERS Safety Report 10366129 (Version 1)
Quarter: 2014Q3

REPORT INFORMATION
  Report Type: Spontaneous
  Country: US (occurrence: US)
  Receive Date: 20140806
  Receipt Date: 20140806
  Transmission Date: 20150326
  Serious: Yes (Hospitalization, Other)
  Sender: FDA-Public Use
  Company Number: US-B.I. PHARMACEUTICALS,INC./RIDGEFIELD-2014-BI-35613BP

PATIENT
  Age: 50 Year
  Sex: Male

DRUGS (13)
  1. AMBIEN [Concomitant]
     Active Substance: ZOLPIDEM TARTRATE
     Route: 065
  2. COREG [Concomitant]
     Active Substance: CARVEDILOL
     Dosage: 25 MG
     Route: 065
  3. MEXILENTINE [Concomitant]
     Dosage: 600 MG
     Route: 065
  4. POTASSIUM CHLORIDE. [Concomitant]
     Active Substance: POTASSIUM CHLORIDE
     Route: 065
  5. SIMVASTATIN. [Concomitant]
     Active Substance: SIMVASTATIN
     Dosage: 40 MG
     Route: 065
  6. METFORMIN [Concomitant]
     Active Substance: METFORMIN HYDROCHLORIDE
     Dosage: 1000 MG
     Route: 065
  7. PRADAXA [Suspect]
     Active Substance: DABIGATRAN ETEXILATE MESYLATE
     Indication: ATRIAL FIBRILLATION
     Dosage: 300 MG
     Route: 065
  8. DIAZEPAM. [Concomitant]
     Active Substance: DIAZEPAM
     Indication: ANXIETY
     Dosage: 30 MG
     Route: 065
  9. OMEPRAZOLE. [Concomitant]
     Active Substance: OMEPRAZOLE
     Route: 065
  10. AMIODARONE [Concomitant]
     Active Substance: AMIODARONE
     Dosage: 200 MG
     Route: 065
  11. LISINOPRIL. [Concomitant]
     Active Substance: LISINOPRIL
     Dosage: 5 MG
     Route: 065
  12. LASIX [Concomitant]
     Active Substance: FUROSEMIDE
     Dosage: 40 MG
     Route: 065
  13. NITROGLYCERIN. [Concomitant]
     Active Substance: NITROGLYCERIN
     Dosage: FORMULATION: PATCH
     Route: 065

REACTIONS (4)
  - Gastrointestinal haemorrhage [Unknown]
  - Anaemia [Unknown]
  - Sepsis [Unknown]
  - Renal failure [Unknown]

NARRATIVE: CASE EVENT DATE: 201204
